FAERS Safety Report 10314739 (Version 1)
Quarter: 2014Q3

REPORT INFORMATION
  Report Type: Spontaneous
  Country: US (occurrence: None)
  Receive Date: 20140717
  Receipt Date: 20140717
  Transmission Date: 20150326
  Serious: Yes (Life-Threatening, Hospitalization)
  Sender: FDA-Public Use
  Company Number: US-H14001-14-00232

PATIENT
  Age: 58 Year
  Sex: Female

DRUGS (3)
  1. HYDROXYCHLOROQUINE (HYDROXYCHLOROQUINE) (UNKNOWN) (HYDROXYCHLOROQUINE) [Suspect]
     Active Substance: HYDROXYCHLOROQUINE
     Indication: RHEUMATOID ARTHRITIS
  2. PREDNISONE (PREDNISONE) (UNKNOWN) [Suspect]
     Active Substance: PREDNISONE
     Indication: RHEUMATOID ARTHRITIS
  3. METHOTREXATE (METHOTREXATE SODIUM) [Suspect]
     Active Substance: METHOTREXATE SODIUM
     Indication: RHEUMATOID ARTHRITIS

REACTIONS (13)
  - Blood potassium decreased [None]
  - Blood albumin decreased [None]
  - Malaise [None]
  - Contusion [None]
  - Blood sodium decreased [None]
  - International normalised ratio increased [None]
  - Lethargy [None]
  - Strongyloidiasis [None]
  - Malabsorption [None]
  - Generalised oedema [None]
  - Malnutrition [None]
  - Abdominal tenderness [None]
  - Inflammation [None]
